FAERS Safety Report 18293574 (Version 5)
Quarter: 2023Q2

REPORT INFORMATION
  Report Type: Report from Study
  Country: JP (occurrence: JP)
  Receive Date: 20200922
  Receipt Date: 20230630
  Transmission Date: 20230722
  Serious: Yes (Other)
  Sender: FDA-Public Use
  Company Number: JP-CELLTRION INC.-2020JP028026

PATIENT

DRUGS (9)
  1. INFLIXIMAB-DYYB [Suspect]
     Active Substance: INFLIXIMAB-DYYB
     Indication: Crohn^s disease
     Dosage: 350 MG (PATIENT WEIGHT: 70.5 KG)
     Route: 041
     Dates: start: 20181104, end: 20181104
  2. INFLIXIMAB-DYYB [Suspect]
     Active Substance: INFLIXIMAB-DYYB
     Dosage: 355 MG (PATIENT WEIGHT: 70.6 KG)
     Route: 041
     Dates: start: 20190106, end: 20190106
  3. INFLIXIMAB-DYYB [Suspect]
     Active Substance: INFLIXIMAB-DYYB
     Dosage: 355 MG (PATIENT WEIGHT: 71 KG)
     Route: 041
     Dates: start: 20190303, end: 20190303
  4. INFLIXIMAB-DYYB [Suspect]
     Active Substance: INFLIXIMAB-DYYB
     Dosage: 335 MG (PATIENT WEIGHT: 66.5 KG)
     Route: 041
     Dates: start: 20190624, end: 20190624
  5. INFLIXIMAB-DYYB [Suspect]
     Active Substance: INFLIXIMAB-DYYB
     Dosage: 330 MG (PATIENT WEIGHT: 65.6 KG)
     Route: 041
     Dates: start: 20191210, end: 20191210
  6. INFLIXIMAB-DYYB [Suspect]
     Active Substance: INFLIXIMAB-DYYB
     Dosage: 325 MG (PATIENT WEIGHT: 65 KG)
     Route: 041
     Dates: start: 20201104, end: 20201104
  7. INFLIXIMAB-DYYB [Suspect]
     Active Substance: INFLIXIMAB-DYYB
     Dosage: 330 MG (PATIENT WEIGHT: 65.6 KG)
     Route: 041
     Dates: start: 20211011, end: 20211011
  8. INFLIXIMAB-DYYB [Suspect]
     Active Substance: INFLIXIMAB-DYYB
     Dosage: 640 MG (PATIENT WEIGHT: 64.3 KG)
     Route: 041
     Dates: start: 20221024, end: 20221024
  9. MESALAMINE [Concomitant]
     Active Substance: MESALAMINE
     Dosage: 3000 MILLIGRAM/DAY
     Route: 048

REACTIONS (12)
  - Osteonecrosis [Recovered/Resolved]
  - Pharyngotonsillitis [Recovered/Resolved]
  - COVID-19 [Recovered/Resolved]
  - Faeces soft [Recovered/Resolved]
  - Fracture [Unknown]
  - Cough variant asthma [Recovered/Resolved]
  - Tonsillar ulcer [Recovered/Resolved]
  - Hepatic steatosis [Not Recovered/Not Resolved]
  - Underdose [Unknown]
  - Overdose [Unknown]
  - Intentional product use issue [Unknown]
  - Intentional product use issue [Unknown]

NARRATIVE: CASE EVENT DATE: 20190106
